FAERS Safety Report 15934358 (Version 2)
Quarter: 2019Q1

REPORT INFORMATION
  Report Type: Spontaneous
  Country: US (occurrence: US)
  Receive Date: 20190207
  Receipt Date: 20190214
  Transmission Date: 20190417
  Serious: Yes (Other)
  Sender: FDA-Public Use
  Company Number: US-GLAXOSMITHKLINE-US2019GSK021576

PATIENT
  Sex: Female
  Weight: 99 kg

DRUGS (36)
  1. BEE POLLEN [Concomitant]
     Active Substance: BEE POLLEN
     Route: 048
  2. COLECALCIFEROL [Concomitant]
     Active Substance: CHOLECALCIFEROL
  3. MANGANESE [Concomitant]
     Active Substance: MANGANESE\MANGANESE CHLORIDE
  4. MOLYBDENUM [Concomitant]
     Active Substance: MOLYBDENUM
  5. COPPER [Concomitant]
     Active Substance: COPPER
  6. WELLBUTRIN SR [Suspect]
     Active Substance: BUPROPION HYDROCHLORIDE
     Indication: DEPRESSION
  7. CENTRUM SILVER [Concomitant]
     Active Substance: MINERALS\VITAMINS
  8. PYRIDOXINE HYDROCHLORIDE. [Concomitant]
     Active Substance: PYRIDOXINE HYDROCHLORIDE
  9. BIOTIN [Concomitant]
     Active Substance: BIOTIN
  10. PHYTOMENADIONE [Concomitant]
     Active Substance: PHYTONADIONE
  11. CALCIUM PANTOTHENATE [Concomitant]
     Active Substance: CALCIUM PANTOTHENATE
  12. PHOSPHORUS [Concomitant]
     Active Substance: PHOSPHORUS
  13. NICKEL [Concomitant]
     Active Substance: NICKEL
  14. CHLORINE [Concomitant]
     Active Substance: CHLORINE
  15. TYLENOL [Concomitant]
     Active Substance: ACETAMINOPHEN
     Dosage: UNK, PRN
     Route: 048
  16. FOLIC ACID+VITB12+VITB6+WHEAT DEXTRIN [Concomitant]
  17. CYANOCOBALAMIN. [Concomitant]
     Active Substance: CYANOCOBALAMIN
  18. POTASSIUM [Concomitant]
     Active Substance: POTASSIUM
  19. VANADIUM [Concomitant]
     Active Substance: VANADIUM
  20. IODINE. [Concomitant]
     Active Substance: IODINE
  21. MAGNESIUM [Concomitant]
     Active Substance: MAGNESIUM
  22. CHROMIUM [Concomitant]
     Active Substance: CHROMIC CHLORIDE\CHROMIUM
  23. WELLBUTRIN XL [Suspect]
     Active Substance: BUPROPION HYDROCHLORIDE
     Indication: DEPRESSION
     Dosage: 300 MG, QD
     Route: 048
  24. WELLBUTRIN [Suspect]
     Active Substance: BUPROPION HYDROCHLORIDE
     Indication: DEPRESSION
     Dosage: UNK
  25. HYDROCODONE [Suspect]
     Active Substance: HYDROCODONE
     Indication: PAIN
     Route: 048
  26. SILICON DIOXIDE [Concomitant]
     Active Substance: SILICON DIOXIDE
  27. TRAMADOL. [Suspect]
     Active Substance: TRAMADOL
     Indication: PAIN
     Route: 048
  28. THIAMINE HYDROCHLORIDE. [Concomitant]
     Active Substance: THIAMINE HYDROCHLORIDE
  29. ZINC. [Concomitant]
     Active Substance: ZINC
  30. SELENIUM [Concomitant]
     Active Substance: SELENIUM
  31. TOCOPHEROL [Concomitant]
     Active Substance: TOCOPHEROL
  32. RETINOL [Concomitant]
     Active Substance: RETINOL
  33. RIBOFLAVIN [Concomitant]
     Active Substance: RIBOFLAVIN
  34. NICOTINAMIDE [Concomitant]
     Active Substance: NIACINAMIDE
  35. IRON SALT + VITAMIN B [Concomitant]
  36. CALCIUM + COLECALCIFEROL [Concomitant]
     Active Substance: CALCIUM\CHOLECALCIFEROL

REACTIONS (8)
  - Ankle operation [Unknown]
  - Oropharyngeal spasm [Unknown]
  - Condition aggravated [Unknown]
  - Headache [Unknown]
  - Product substitution issue [Not Recovered/Not Resolved]
  - Ankle fracture [Unknown]
  - Weight increased [Unknown]
  - Urticaria [Unknown]

NARRATIVE: CASE EVENT DATE: 2015
